FAERS Safety Report 9662995 (Version 3)
Quarter: 2013Q4

REPORT INFORMATION
  Report Type: Report from Study
  Country: FR (occurrence: FR)
  Receive Date: 20131031
  Receipt Date: 20131126
  Transmission Date: 20140711
  Serious: Yes (Hospitalization)
  Sender: FDA-Public Use
  Company Number: FR-EXELIXIS-XL18413003480

PATIENT
  Age: 67 Year
  Sex: Male
  Weight: 77 kg

DRUGS (9)
  1. XL184 [Suspect]
     Indication: PROSTATE CANCER
     Dosage: 60 MG, QD
     Route: 048
     Dates: start: 20130916, end: 20131008
  2. XL184 [Suspect]
     Indication: PROSTATE CANCER
     Dosage: 5 MG, BID
     Route: 048
     Dates: start: 20130916, end: 20131008
  3. ORAMORPH [Concomitant]
  4. AMOXICILLIN [Concomitant]
  5. LYRICA [Concomitant]
  6. TRANSIPEG [Concomitant]
  7. DUPHALAC [Concomitant]
  8. PARACETAMOL [Concomitant]
  9. INEXIUM [Concomitant]

REACTIONS (1)
  - Cardiac failure [Not Recovered/Not Resolved]
